FAERS Safety Report 7278490-9 (Version None)
Quarter: 2011Q1

REPORT INFORMATION
  Report Type: 
  Country: None (occurrence: None)
  Receive Date: 20110207
  Receipt Date: 20110117
  Transmission Date: 20110831
  Serious: No
  Sender: FDA-Public Use
  Company Number: FR-ASTRAZENECA-2010SE55501

PATIENT
  Age: 29516 Day
  Sex: Female

DRUGS (4)
  1. LUCENTIS [Concomitant]
     Indication: MACULAR DEGENERATION
  2. ZESTRIL [Suspect]
     Route: 048
  3. NEXIUM [Concomitant]
     Indication: GASTRIC DISORDER
  4. BROMAZEPAM [Concomitant]

REACTIONS (2)
  - EYE HAEMORRHAGE [None]
  - EYE OEDEMA [None]
